FAERS Safety Report 5372896-0 (Version None)
Quarter: 2007Q2

REPORT INFORMATION
  Report Type: 
  Country: None (occurrence: None)
  Receive Date: 20070621
  Receipt Date: 20070206
  Transmission Date: 20071010
  Serious: No
  Sender: FDA-Public Use
  Company Number: US-CVT-070051

PATIENT
  Age: 75 Year
  Sex: Female

DRUGS (8)
  1. RANEXA [Suspect]
     Indication: ANGINA PECTORIS
     Dosage: 500 MG, BID, ORAL
     Route: 048
     Dates: start: 20070111, end: 20070119
  2. TOPROL-XL [Concomitant]
  3. LIPITOR [Concomitant]
  4. METHOTREXATE [Concomitant]
  5. PAXIL [Concomitant]
  6. PREDNISONE TAB [Concomitant]
  7. LISINOPRIL [Concomitant]
  8. PLAVIX [Concomitant]

REACTIONS (1)
  - INTENTION TREMOR [None]
